FAERS Safety Report 5105387-2 (Version None)
Quarter: 2006Q3

REPORT INFORMATION
  Report Type: 
  Country: None (occurrence: None)
  Receive Date: 20060915
  Receipt Date: 20060904
  Transmission Date: 20061208
  Serious: Yes (Other)
  Sender: FDA-Public Use
  Company Number: PHBS2006BR13428

PATIENT
  Age: 54 Year
  Sex: Female

DRUGS (4)
  1. MIFLONIDE [Suspect]
     Dosage: 2 DF/DAY
  2. MIFLONIDE [Suspect]
     Dosage: 4 DF/DAY
  3. FORADIL [Suspect]
     Dosage: UNK, PRN
  4. BUDECORT [Concomitant]
     Indication: RHINITIS

REACTIONS (5)
  - ASTHMA [None]
  - DYSPNOEA [None]
  - FATIGUE [None]
  - OSTEOPENIA [None]
  - SINUSITIS [None]
